FAERS Safety Report 22223185 (Version 3)
Quarter: 2023Q2

REPORT INFORMATION
  Report Type: Spontaneous
  Country: US (occurrence: US)
  Receive Date: 20230418
  Receipt Date: 20230629
  Transmission Date: 20230721
  Serious: No
  Sender: FDA-Public Use
  Company Number: US-PFIZER INC-202300150119

PATIENT
  Age: 13 Year
  Sex: Male

DRUGS (1)
  1. GENOTROPIN [Suspect]
     Active Substance: SOMATROPIN
     Indication: Growth hormone deficiency
     Dosage: 2.6 MG (6 TIMES A WEEK)
     Dates: start: 202303

REACTIONS (3)
  - Wrong technique in device usage process [Unknown]
  - Product odour abnormal [Unknown]
  - Device leakage [Unknown]

NARRATIVE: CASE EVENT DATE: 20230408
